FAERS Safety Report 5813000-1 (Version None)
Quarter: 2008Q3

REPORT INFORMATION
  Report Type: 
  Country: None (occurrence: None)
  Receive Date: 20080717
  Receipt Date: 20071001
  Transmission Date: 20090109
  Serious: No
  Sender: FDA-Public Use
  Company Number: A0684971A

PATIENT
  Age: 71 Year
  Sex: Male

DRUGS (1)
  1. NICORETTE [Suspect]

REACTIONS (4)
  - ASTHENIA [None]
  - DRY MOUTH [None]
  - DYSPNOEA [None]
  - INTENTIONAL DRUG MISUSE [None]
